APPROVED DRUG PRODUCT: CEFTRIAXONE
Active Ingredient: CEFTRIAXONE SODIUM
Strength: EQ 1GM BASE/VIAL
Dosage Form/Route: INJECTABLE;INTRAMUSCULAR, INTRAVENOUS
Application: A065262 | Product #001
Applicant: TEVA PHARMACEUTICALS USA INC
Approved: Jun 29, 2006 | RLD: No | RS: No | Type: DISCN